FAERS Safety Report 8696154 (Version 2)
Quarter: 2012Q4

REPORT INFORMATION
  Report Type: 
  Country: JP (occurrence: JP)
  Receive Date: 20120801
  Receipt Date: 20120830
  Transmission Date: 20130627
  Serious: Yes (Other)
  Sender: FDA-Public Use
  Company Number: JP-009507513-1207JPN000172

PATIENT

DRUGS (8)
  1. STOCRIN [Suspect]
     Indication: HIV INFECTION
     Dosage: Divided dose frequency U
     Route: 048
     Dates: start: 20000901, end: 20100711
  2. TRUVADA [Suspect]
     Indication: HIV INFECTION
     Dosage: Divided dose frequency U
     Route: 048
     Dates: start: 20060830
  3. PEGINTRON [Suspect]
     Indication: HEPATITIS C
     Dosage: 100 mg, qw
     Route: 058
     Dates: start: 20090824, end: 20100315
  4. REBETOL [Suspect]
     Indication: HEPATITIS C
     Dosage: 400 mg, bid
     Route: 048
     Dates: start: 20090824, end: 20100315
  5. ISENTRESS TABLETS 400MG [Concomitant]
     Indication: HIV INFECTION
     Dosage: Divided dose frequency U
     Route: 048
     Dates: start: 20100712
  6. RENIVACE [Concomitant]
     Indication: HYPERTENSION
     Dosage: 5 mg, bid
     Route: 048
  7. ADVATE [Concomitant]
     Indication: FACTOR VIII DEFICIENCY
     Dosage: 6 in 1 Month
     Route: 030
  8. GASTER [Concomitant]
     Indication: GASTRITIS
     Dosage: 20 mg, bid
     Route: 065

REACTIONS (3)
  - Hepatitis C [Not Recovered/Not Resolved]
  - Full blood count decreased [Not Recovered/Not Resolved]
  - Diabetes mellitus [Not Recovered/Not Resolved]
